FAERS Safety Report 8110655-6 (Version None)
Quarter: 2012Q1

REPORT INFORMATION
  Report Type: 
  Country: None (occurrence: None)
  Receive Date: 20120201
  Receipt Date: 20120201
  Transmission Date: 20120608
  Serious: No
  Sender: FDA-Public Use
  Company Number: None

PATIENT
  Sex: Female
  Weight: 69 kg

DRUGS (3)
  1. LEVOTHYROXINE SODIUM [Concomitant]
  2. TOPOTECAN [Suspect]
     Dosage: 1.27 MG
  3. TAXOL [Suspect]
     Dosage: 297.44 MG

REACTIONS (1)
  - NEUTROPENIA [None]
